FAERS Safety Report 12488260 (Version 1)
Quarter: 2016Q2

REPORT INFORMATION
  Report Type: Spontaneous
  Country: GB (occurrence: GB)
  Receive Date: 20160622
  Receipt Date: 20160622
  Transmission Date: 20160815
  Serious: Yes (Hospitalization, Other)
  Sender: FDA-Public Use
  Company Number: GB-GLAXOSMITHKLINE-B0342239A

PATIENT
  Age: 36 Year
  Sex: Male

DRUGS (3)
  1. PAROXETINE. [Suspect]
     Active Substance: PAROXETINE
     Indication: BIPOLAR DISORDER
     Dosage: UNK
     Dates: start: 19971113
  2. SEROXAT [Suspect]
     Active Substance: PAROXETINE HYDROCHLORIDE
     Indication: PRODUCT USED FOR UNKNOWN INDICATION
     Dosage: UNK
     Route: 065
     Dates: start: 19970916
  3. LITHIUM CARBONATE. [Concomitant]
     Active Substance: LITHIUM CARBONATE
     Indication: PRODUCT USED FOR UNKNOWN INDICATION

REACTIONS (34)
  - Dyskinesia [Unknown]
  - Aggression [Unknown]
  - Burning sensation [Unknown]
  - Mood altered [Unknown]
  - Suicide attempt [Unknown]
  - Headache [Unknown]
  - Anger [Unknown]
  - Malaise [Unknown]
  - Personality change [Unknown]
  - Drug withdrawal syndrome [Unknown]
  - Insomnia [Unknown]
  - Restlessness [Unknown]
  - Fatigue [Unknown]
  - Depressed mood [Unknown]
  - Tremor [Unknown]
  - Irritability [Unknown]
  - Skin reaction [Unknown]
  - Anxiety [Unknown]
  - Pain [Unknown]
  - Suicidal ideation [Unknown]
  - Paraesthesia [Unknown]
  - Flushing [Unknown]
  - Asthenia [Unknown]
  - Mania [Unknown]
  - Decreased appetite [Unknown]
  - Agitation [Unknown]
  - Head titubation [Unknown]
  - Panic attack [Unknown]
  - Disturbance in attention [Unknown]
  - Anger [Unknown]
  - Energy increased [Unknown]
  - Dizziness [Unknown]
  - Rash [Unknown]
  - Hypoaesthesia [Unknown]

NARRATIVE: CASE EVENT DATE: 199712
